FAERS Safety Report 6886570-2 (Version None)
Quarter: 2010Q3

REPORT INFORMATION
  Report Type: 
  Country: None (occurrence: None)
  Receive Date: 20100730
  Receipt Date: 20100721
  Transmission Date: 20110219
  Serious: No
  Sender: FDA-Public Use
  Company Number: US-BIOGENIDEC-2010BI020959

PATIENT
  Sex: Female

DRUGS (1)
  1. TYSABRI [Suspect]
     Indication: MULTIPLE SCLEROSIS
     Route: 042
     Dates: start: 20071207, end: 20100331

REACTIONS (8)
  - BALANCE DISORDER [None]
  - COORDINATION ABNORMAL [None]
  - EAR INFECTION [None]
  - HEADACHE [None]
  - PHARYNGITIS [None]
  - SINUSITIS [None]
  - URINARY TRACT INFECTION [None]
  - VISUAL IMPAIRMENT [None]
